FAERS Safety Report 7308784-X (Version None)
Quarter: 2011Q1

REPORT INFORMATION
  Report Type: 
  Country: None (occurrence: None)
  Receive Date: 20110223
  Receipt Date: 20110215
  Transmission Date: 20110831
  Serious: Yes (Death, Hospitalization)
  Sender: FDA-Public Use
  Company Number: US-GENZYME-CLOF-1000945

PATIENT
  Sex: Male
  Weight: 76.2 kg

DRUGS (14)
  1. MYCOPHENOLATE MOFETIL [Concomitant]
     Dosage: 1 G, BID
     Route: 042
     Dates: start: 20100505, end: 20100517
  2. ACYCLOVIR [Concomitant]
     Indication: PRODUCT USED FOR UNKNOWN INDICATION
     Dosage: UNK
     Route: 065
  3. THIOTEPA [Suspect]
     Indication: ACUTE PROMYELOCYTIC LEUKAEMIA
     Dosage: 10 MG/KG (750 MG), ONCE
     Route: 065
     Dates: start: 20100416, end: 20100416
  4. VANCOMYCIN [Concomitant]
     Indication: PRODUCT USED FOR UNKNOWN INDICATION
     Dosage: UNK
     Route: 065
  5. MYCOPHENOLATE MOFETIL [Concomitant]
     Indication: PROPHYLAXIS AGAINST GRAFT VERSUS HOST DISEASE
     Dosage: 1 G, TID
     Route: 042
     Dates: start: 20100419, end: 20100505
  6. MELPHALAN [Suspect]
     Indication: ACUTE PROMYELOCYTIC LEUKAEMIA
     Dosage: 70 MG/KG (130 MG)
     Route: 065
     Dates: start: 20100417, end: 20100418
  7. TACROLIMUS [Concomitant]
     Indication: PROPHYLAXIS AGAINST GRAFT VERSUS HOST DISEASE
     Dosage: 2 MG, QD
     Route: 042
     Dates: start: 20100417, end: 20100517
  8. SIROLIMUS [Concomitant]
     Indication: PROPHYLAXIS AGAINST GRAFT VERSUS HOST DISEASE
     Dosage: 12 MG, 1 TABLET
     Route: 048
     Dates: start: 20100420, end: 20100420
  9. PIPERACILLIN W [Concomitant]
     Indication: PRODUCT USED FOR UNKNOWN INDICATION
     Dosage: UNK
     Route: 065
  10. MICAFUNGIN [Concomitant]
     Indication: PRODUCT USED FOR UNKNOWN INDICATION
     Dosage: UNK
     Route: 065
  11. CLOLAR [Suspect]
     Indication: ACUTE PROMYELOCYTIC LEUKAEMIA
     Dosage: 30 MG/M2 (55 MG), QDX5
     Route: 042
     Dates: start: 20100411, end: 20100415
  12. SIROLIMUS [Concomitant]
     Dosage: 4 MG, 1 TABLET
     Route: 048
     Dates: start: 20100421, end: 20100421
  13. METHOTREXATE [Concomitant]
     Indication: PROPHYLAXIS
     Dosage: UNK
     Route: 065
  14. FILGRASTIM [Concomitant]
     Indication: PRODUCT USED FOR UNKNOWN INDICATION
     Dosage: 480 MG, BID
     Route: 058
     Dates: start: 20100423, end: 20100517

REACTIONS (5)
  - VENOOCCLUSIVE LIVER DISEASE [None]
  - RENAL FAILURE [None]
  - HEPATIC FUNCTION ABNORMAL [None]
  - ENCEPHALOPATHY [None]
  - MULTI-ORGAN FAILURE [None]
